FAERS Safety Report 5859692-2 (Version None)
Quarter: 2008Q3

REPORT INFORMATION
  Report Type: 
  Country: None (occurrence: None)
  Receive Date: 20080827
  Receipt Date: 20080822
  Transmission Date: 20090109
  Serious: Yes (Other)
  Sender: FDA-Public Use
  Company Number: JP-WATSON-2008-05094

PATIENT
  Age: 47 Year
  Sex: Male

DRUGS (1)
  1. ISOSORBIDE DINITRATE (WATSON LABORATORIES) [Suspect]
     Indication: CORONARY ARTERY DISEASE
     Dosage: 0.5 MG, UNKNOWN
     Route: 022

REACTIONS (2)
  - ARTERIOGRAM CORONARY ABNORMAL [None]
  - ELECTROCARDIOGRAM ST SEGMENT ELEVATION [None]
